FAERS Safety Report 9190549 (Version 3)
Quarter: 2013Q2

REPORT INFORMATION
  Report Type: Report from Study
  Country: US (occurrence: US)
  Receive Date: 20130326
  Receipt Date: 20130501
  Transmission Date: 20140414
  Serious: Yes (Other)
  Sender: FDA-Public Use
  Company Number: US-ROCHE-1206660

PATIENT
  Age: 58 Year
  Sex: Female

DRUGS (3)
  1. NUTROPIN AQ [Suspect]
     Indication: GROWTH HORMONE DEFICIENCY
     Route: 058
  2. NUTROPIN AQ [Suspect]
     Route: 058
  3. DESMOPRESSIN [Concomitant]

REACTIONS (3)
  - Convulsion [Unknown]
  - Amnesia [Not Recovered/Not Resolved]
  - Blood sodium decreased [Unknown]
